FAERS Safety Report 19204852 (Version 1)
Quarter: 2021Q2

REPORT INFORMATION
  Report Type: Spontaneous
  Country: US (occurrence: US)
  Receive Date: 20210430
  Receipt Date: 20210430
  Transmission Date: 20210717
  Serious: Yes (Hospitalization)
  Sender: FDA-Public Use
  Company Number: None

PATIENT
  Age: 76 Year
  Sex: Male
  Weight: 79.1 kg

DRUGS (14)
  1. FINASTERIDE. [Suspect]
     Active Substance: FINASTERIDE
     Indication: BENIGN PROSTATIC HYPERPLASIA
     Route: 048
     Dates: start: 20200216, end: 20210429
  2. WARFARIN 1MG [Concomitant]
  3. FERROUS SULFATE 325MG [Concomitant]
     Active Substance: FERROUS SULFATE
  4. METOPROLOL 25MG [Concomitant]
     Active Substance: METOPROLOL
  5. MIDODRINE 5MG [Concomitant]
     Active Substance: MIDODRINE
  6. PRAVASTATIN. [Concomitant]
     Active Substance: PRAVASTATIN
  7. AZATHIOPRINE. [Suspect]
     Active Substance: AZATHIOPRINE
     Indication: PROPHYLAXIS AGAINST TRANSPLANT REJECTION
     Route: 048
     Dates: start: 20190923, end: 20210429
  8. GENGRAF [Concomitant]
     Active Substance: CYCLOSPORINE
  9. SULFAMETH/ TMP 400MG?80MG [Concomitant]
  10. PREDNISONE 5MG [Concomitant]
     Active Substance: PREDNISONE
  11. AZITHROMYCIN 250MG [Concomitant]
     Active Substance: AZITHROMYCIN ANHYDROUS
  12. EZETIMIBE 10MG [Concomitant]
     Active Substance: EZETIMIBE
  13. MAG?OXIDE 400MG [Concomitant]
  14. PANTOPRAZOLE 40MG [Concomitant]
     Active Substance: PANTOPRAZOLE SODIUM

REACTIONS (3)
  - Haemoglobin decreased [None]
  - Orthostatic hypotension [None]
  - Gait inability [None]

NARRATIVE: CASE EVENT DATE: 20210415
